FAERS Safety Report 8472104-8 (Version None)
Quarter: 2012Q2

REPORT INFORMATION
  Report Type: 
  Country: None (occurrence: None)
  Receive Date: 20120627
  Receipt Date: 20120618
  Transmission Date: 20120825
  Serious: Yes (Other)
  Sender: FDA-Public Use
  Company Number: PE-ASTRAZENECA-2012SE40614

PATIENT
  Age: 72 Year
  Sex: Male

DRUGS (2)
  1. LUPRON [Concomitant]
     Indication: PROSTATE CANCER
  2. ZOLADEX [Suspect]
     Indication: PROSTATE CANCER
     Route: 058

REACTIONS (1)
  - GUILLAIN-BARRE SYNDROME [None]
